FAERS Safety Report 8581640-5 (Version None)
Quarter: 2012Q2

REPORT INFORMATION
  Report Type: 
  Country: None (occurrence: None)
  Receive Date: 20120423
  Receipt Date: 20100710
  Transmission Date: 20120825
  Serious: Yes (Hospitalization)
  Sender: FDA-Public Use
  Company Number: PHHY2010US45896

PATIENT
  Sex: Female
  Weight: 44 kg

DRUGS (5)
  1. EXJADE [Suspect]
     Indication: IRON METABOLISM DISORDER
     Dosage: 1000 MG DAILY, ORAL
     Route: 048
     Dates: start: 20100608
  2. PERCOCET [Concomitant]
  3. DILAUDID [Concomitant]
  4. FOLIC ACID [Concomitant]
  5. COUMADIN [Concomitant]

REACTIONS (1)
  - SICKLE CELL ANAEMIA WITH CRISIS [None]
